FAERS Safety Report 10884806 (Version 6)
Quarter: 2015Q3

REPORT INFORMATION
  Report Type: Report from Study
  Country: FR (occurrence: FR)
  Receive Date: 20150304
  Receipt Date: 20150701
  Transmission Date: 20151125
  Serious: Yes (Other)
  Sender: FDA-Public Use
  Company Number: FR-009507513-1503FRA000132

PATIENT
  Age: 49 Year
  Sex: Male

DRUGS (4)
  1. PEMBROLIZUMAB. [Suspect]
     Active Substance: PEMBROLIZUMAB
     Dosage: 2 MG/KG, Q3W
     Route: 042
     Dates: start: 20150216, end: 20150216
  2. XYZALL [Concomitant]
     Active Substance: LEVOCETIRIZINE DIHYDROCHLORIDE
     Indication: PRURITUS
     Dosage: 1 TAB, QD
     Route: 048
     Dates: start: 20150217, end: 20150225
  3. PEMBROLIZUMAB. [Suspect]
     Active Substance: PEMBROLIZUMAB
     Indication: MALIGNANT MELANOMA
     Dosage: 2 MG/KG, Q3W
     Route: 042
     Dates: start: 20150126, end: 20150126
  4. CRESTOR [Concomitant]
     Active Substance: ROSUVASTATIN CALCIUM
     Indication: HYPERCHOLESTEROLAEMIA
     Dosage: 1 TAB, QD, START DATE : FOR SEVERAL YEARS
     Route: 048
     Dates: end: 20150225

REACTIONS (1)
  - Autoimmune hepatitis [Recovered/Resolved]
